FAERS Safety Report 8081667-6 (Version None)
Quarter: 2012Q1

REPORT INFORMATION
  Report Type: 
  Country: None (occurrence: None)
  Receive Date: 20120130
  Receipt Date: 20120126
  Transmission Date: 20120608
  Serious: Yes (Hospitalization)
  Sender: FDA-Public Use
  Company Number: IT-B.I. PHARMACEUTICALS,INC./RIDGEFIELD-2012-EU-00605GD

PATIENT

DRUGS (1)
  1. RANITIDINE [Suspect]
     Dosage: MEAN DOSE IN SUBJECTS PRESENTING INFECTIONS: INTRAVENOUS 2.43 MG/KG, ENTERAL ROUTE 11.44 MG/KG

REACTIONS (1)
  - SERRATIA INFECTION [None]
